FAERS Safety Report 7820135-0 (Version None)
Quarter: 2011Q4

REPORT INFORMATION
  Report Type: 
  Country: None (occurrence: None)
  Receive Date: 20111018
  Receipt Date: 20111012
  Transmission Date: 20120403
  Serious: Yes (Other)
  Sender: FDA-Public Use
  Company Number: PHEH2011US04463

PATIENT
  Sex: Female
  Weight: 55 kg

DRUGS (5)
  1. FOSAMAX [Concomitant]
  2. MIRALAX [Concomitant]
  3. ZOLOFT [Concomitant]
  4. TOPAMAX [Concomitant]
  5. GILENYA [Suspect]
     Indication: MULTIPLE SCLEROSIS
     Dosage: 0.5 MG, QD
     Route: 048
     Dates: start: 20110804, end: 20110914

REACTIONS (5)
  - VERTIGO [None]
  - SYNCOPE [None]
  - LOSS OF CONSCIOUSNESS [None]
  - MIGRAINE [None]
  - CHEST PAIN [None]
